FAERS Safety Report 9915112 (Version 1)
Quarter: 2014Q1

REPORT INFORMATION
  Report Type: Report from Study
  Country: BE (occurrence: BE)
  Receive Date: 20140220
  Receipt Date: 20140220
  Transmission Date: 20141002
  Serious: Yes (Hospitalization)
  Sender: FDA-Public Use
  Company Number: BE-ASTRAZENECA-2014SE11099

PATIENT
  Age: 54 Year
  Sex: Female

DRUGS (5)
  1. TICAGRELOR [Suspect]
     Indication: ACUTE CORONARY SYNDROME
     Route: 048
     Dates: start: 20130715
  2. ASPIRIN [Suspect]
     Indication: ACUTE CORONARY SYNDROME
     Route: 048
     Dates: start: 20130715
  3. INSULIN [Concomitant]
     Dosage: 15U/10/U/15/U (3 T.I.D)
  4. METFORMIN [Concomitant]
     Dosage: 500 (3 T.I.D)
  5. LOPERAMIDE [Concomitant]
     Dosage: AS REQUIRED

REACTIONS (4)
  - Angina pectoris [Recovered/Resolved]
  - Diabetes mellitus [None]
  - Angina pectoris [None]
  - Drug ineffective [None]
